FAERS Safety Report 7512068-4 (Version None)
Quarter: 2011Q2

REPORT INFORMATION
  Report Type: 
  Country: None (occurrence: None)
  Receive Date: 20110531
  Receipt Date: 20110519
  Transmission Date: 20111010
  Serious: Yes (Other)
  Sender: FDA-Public Use
  Company Number: JP-ASTRAZENECA-2011SE31341

PATIENT
  Age: 83 Year
  Sex: Female
  Weight: 39 kg

DRUGS (3)
  1. IRESSA [Suspect]
     Route: 048
     Dates: start: 20041001
  2. IRESSA [Suspect]
     Indication: LUNG ADENOCARCINOMA
     Route: 048
     Dates: start: 20040720, end: 20040801
  3. IRESSA [Suspect]
     Route: 048
     Dates: start: 20041001, end: 20041001

REACTIONS (3)
  - PNEUMONIA [None]
  - MALAISE [None]
  - DECREASED APPETITE [None]
